FAERS Safety Report 6437506-X (Version None)
Quarter: 2009Q4

REPORT INFORMATION
  Report Type: 
  Country: None (occurrence: None)
  Receive Date: 20091110
  Receipt Date: 20080521
  Transmission Date: 20100525
  Serious: No
  Sender: FDA-Public Use
  Company Number: AEUSA200800123

PATIENT
  Sex: Female

DRUGS (1)
  1. GAMUNEX [Suspect]
     Indication: DEMYELINATING POLYNEUROPATHY

REACTIONS (1)
  - RASH [None]
